FAERS Safety Report 6073621-0 (Version None)
Quarter: 2009Q1

REPORT INFORMATION
  Report Type: 
  Country: None (occurrence: None)
  Receive Date: 20090211
  Receipt Date: 20090130
  Transmission Date: 20090719
  Serious: Yes (Hospitalization)
  Sender: FDA-Public Use
  Company Number: FR-PFIZER INC-2009164495

PATIENT

DRUGS (15)
  1. TRIFLUCAN [Suspect]
     Dosage: 100 MG, 1X/DAY
     Route: 048
     Dates: start: 20080927, end: 20081004
  2. ALLOPURINOL [Suspect]
     Dosage: 100 MG, 1X/DAY
     Route: 048
     Dates: start: 20080918, end: 20080923
  3. CIPROFLOXACIN HYDROCHLORIDE [Suspect]
     Dosage: 1 G, 1X/DAY
     Route: 048
     Dates: start: 20080921, end: 20080923
  4. TAVANIC [Suspect]
     Route: 048
     Dates: start: 20080923, end: 20081004
  5. FLUINDIONE [Concomitant]
  6. LYSINE [Concomitant]
  7. PRAVASTATIN [Concomitant]
  8. OMEPRAZOLE [Concomitant]
  9. ACEBUTOLOL [Concomitant]
  10. INSULIN ASPART [Concomitant]
  11. PRISTINAMYCIN [Concomitant]
     Dates: start: 20080612
  12. CEFTRIAXONE [Concomitant]
     Dates: start: 20080804
  13. FUROSEMIDE [Concomitant]
  14. SALBUTAMOL SULFATE [Concomitant]
  15. AMPHOTERICIN B [Concomitant]

REACTIONS (1)
  - DRUG RASH WITH EOSINOPHILIA AND SYSTEMIC SYMPTOMS [None]
